FAERS Safety Report 10441770 (Version 2)
Quarter: 2014Q3

REPORT INFORMATION
  Report Type: Spontaneous
  Country: US (occurrence: US)
  Receive Date: 20140908
  Receipt Date: 20140930
  Transmission Date: 20150326
  Serious: Yes (Hospitalization)
  Sender: FDA-Public Use
  Company Number: US-PFIZER INC-2014248969

PATIENT
  Age: 61 Year
  Sex: Male
  Weight: 95.24 kg

DRUGS (7)
  1. TACROLIMUS. [Concomitant]
     Active Substance: TACROLIMUS
     Dosage: UNK
  2. VALTREX [Concomitant]
     Active Substance: VALACYCLOVIR HYDROCHLORIDE
     Dosage: UNK
  3. DAPSONE. [Concomitant]
     Active Substance: DAPSONE
     Dosage: UNK
  4. MAGNESIUM OXIDE. [Concomitant]
     Active Substance: MAGNESIUM OXIDE
     Dosage: UNK
  5. NORVASC [Concomitant]
     Active Substance: AMLODIPINE BESYLATE
     Dosage: UNK
  6. ACTIGALL [Concomitant]
     Active Substance: URSODIOL
     Dosage: UNK
  7. VFEND [Suspect]
     Active Substance: VORICONAZOLE
     Indication: PNEUMONIA FUNGAL
     Dosage: 200 MG, 2X/DAY (BY TAKING FOUR 50MG ORAL TABLET TOGETHER)
     Route: 048
     Dates: start: 201404

REACTIONS (3)
  - Weight decreased [Unknown]
  - Drug prescribing error [Unknown]
  - Malaise [Unknown]

NARRATIVE: CASE EVENT DATE: 2014
